FAERS Safety Report 10442419 (Version 2)
Quarter: 2014Q3

REPORT INFORMATION
  Report Type: Spontaneous
  Country: AR (occurrence: AR)
  Receive Date: 20140909
  Receipt Date: 20140925
  Transmission Date: 20150326
  Serious: Yes (Hospitalization)
  Sender: FDA-Public Use
  Company Number: AR-PFIZER INC-2014246112

PATIENT
  Age: 68 Year
  Sex: Male

DRUGS (1)
  1. SUTENT [Suspect]
     Active Substance: SUNITINIB MALATE
     Indication: METASTATIC RENAL CELL CARCINOMA
     Dosage: 50 MG, DAILY
     Dates: start: 20140616, end: 20140826

REACTIONS (9)
  - Dehydration [Recovering/Resolving]
  - Infection [Recovered/Resolved]
  - Pallor [Recovering/Resolving]
  - Hypersomnia [Recovering/Resolving]
  - Vomiting [Recovered/Resolved]
  - Platelet disorder [Recovered/Resolved]
  - Anaemia [Recovered/Resolved]
  - Dizziness [Recovering/Resolving]
  - Gait disturbance [Recovered/Resolved]

NARRATIVE: CASE EVENT DATE: 20140901
